FAERS Safety Report 8563577-0 (Version None)
Quarter: 2012Q3

REPORT INFORMATION
  Report Type: 
  Country: None (occurrence: None)
  Receive Date: 20120803
  Receipt Date: 20120723
  Transmission Date: 20120928
  Serious: Yes (Hospitalization)
  Sender: FDA-Public Use
  Company Number: US-009507513-1207USA010763

PATIENT

DRUGS (1)
  1. ZOCOR [Suspect]
     Route: 048

REACTIONS (4)
  - RHABDOMYOLYSIS [None]
  - HEART RATE DECREASED [None]
  - BLOOD PRESSURE IMMEASURABLE [None]
  - UNRESPONSIVE TO STIMULI [None]
